FAERS Safety Report 16118725 (Version 3)
Quarter: 2019Q2

REPORT INFORMATION
  Report Type: Spontaneous
  Country: PL (occurrence: PL)
  Receive Date: 20190326
  Receipt Date: 20190605
  Transmission Date: 20190711
  Serious: Yes (Hospitalization)
  Sender: FDA-Public Use
  Company Number: PL-JNJFOC-20180533357

PATIENT
  Age: 79 Year
  Sex: Male
  Weight: 58.5 kg

DRUGS (9)
  1. ASPIRIN. [Suspect]
     Active Substance: ASPIRIN
     Indication: CORONARY ARTERY DISEASE
     Route: 048
     Dates: start: 20170712, end: 20170908
  2. BISOPROLOL [Concomitant]
     Active Substance: BISOPROLOL
     Indication: CARDIAC FAILURE
     Route: 048
     Dates: start: 20170802
  3. TORSEMIDE. [Concomitant]
     Active Substance: TORSEMIDE
     Indication: CARDIAC FAILURE
     Route: 048
     Dates: start: 201707
  4. VERICIGUAT [Suspect]
     Active Substance: VERICIGUAT HYDROCHLORIDE
     Indication: CARDIAC FAILURE
     Route: 048
     Dates: start: 20170824
  5. ZOFENOPRIL CALCIUM [Concomitant]
     Active Substance: ZOFENOPRIL CALCIUM
     Indication: CARDIAC FAILURE
     Route: 048
     Dates: start: 201707
  6. ATORVASTATIN [Concomitant]
     Active Substance: ATORVASTATIN
     Indication: HYPERLIPIDAEMIA
     Route: 048
     Dates: start: 201505
  7. XARELTO [Suspect]
     Active Substance: RIVAROXABAN
     Indication: CEREBROVASCULAR ACCIDENT PROPHYLAXIS
     Route: 048
     Dates: start: 201707, end: 20170908
  8. EPLERENONE. [Concomitant]
     Active Substance: EPLERENONE
     Indication: CARDIAC FAILURE
     Route: 048
     Dates: start: 201708
  9. PANTOPRAZOLE [Concomitant]
     Active Substance: PANTOPRAZOLE
     Indication: PROPHYLAXIS
     Route: 048
     Dates: start: 20150528

REACTIONS (2)
  - Traumatic liver injury [Recovering/Resolving]
  - Anaemia [Recovered/Resolved]

NARRATIVE: CASE EVENT DATE: 20170902
